FAERS Safety Report 6615185-6 (Version None)
Quarter: 2010Q1

REPORT INFORMATION
  Report Type: 
  Country: None (occurrence: None)
  Receive Date: 20100305
  Receipt Date: 20100226
  Transmission Date: 20100710
  Serious: Yes (Hospitalization)
  Sender: FDA-Public Use
  Company Number: PHHO2010NO02462

PATIENT
  Sex: Male
  Weight: 66 kg

DRUGS (1)
  1. TASIGNA [Suspect]
     Indication: CHRONIC MYELOID LEUKAEMIA
     Dosage: UNK
     Route: 048
     Dates: start: 20081201

REACTIONS (4)
  - CHEST PAIN [None]
  - CORONARY ARTERY STENOSIS [None]
  - ISCHAEMIA [None]
  - PERCUTANEOUS CORONARY INTERVENTION [None]
